FAERS Safety Report 9933484 (Version 2)
Quarter: 2014Q1

REPORT INFORMATION
  Report Type: Report from Study
  Country: US (occurrence: US)
  Receive Date: 20140228
  Receipt Date: 20140228
  Transmission Date: 20141002
  Serious: Yes (Other)
  Sender: FDA-Public Use
  Company Number: US-MYLANLABS-2013S1009954

PATIENT
  Age: 3 Year
  Sex: Female
  Weight: 14.6 kg

DRUGS (2)
  1. AMNESTEEM CAPSULES [Suspect]
     Indication: NEUROBLASTOMA
     Route: 048
     Dates: start: 20130412, end: 20130425
  2. AMNESTEEM CAPSULES [Suspect]
     Indication: OFF LABEL USE
     Route: 048
     Dates: start: 20130412, end: 20130425

REACTIONS (2)
  - Drug ineffective for unapproved indication [Not Recovered/Not Resolved]
  - Neuroblastoma [Not Recovered/Not Resolved]
